FAERS Safety Report 16062486 (Version 1)
Quarter: 2019Q1

REPORT INFORMATION
  Report Type: Spontaneous
  Country: DE (occurrence: DE)
  Receive Date: 20190312
  Receipt Date: 20190312
  Transmission Date: 20190418
  Serious: Yes (Other)
  Sender: FDA-Public Use
  Company Number: PHHY2019DE054953

PATIENT
  Sex: Male

DRUGS (1)
  1. ENTRESTO [Suspect]
     Active Substance: SACUBITRIL\VALSARTAN
     Indication: PRODUCT USED FOR UNKNOWN INDICATION
     Dosage: 0.5 DF, BID (HALF A TABLET IN THE MORNING AND HALF A TABLET IN THE EVENING)
     Route: 065
     Dates: start: 2018

REACTIONS (4)
  - Haematochezia [Unknown]
  - Infrequent bowel movements [Unknown]
  - Faeces discoloured [Unknown]
  - Wrong technique in product usage process [Unknown]
